FAERS Safety Report 9853577 (Version 1)
Quarter: 2014Q1

REPORT INFORMATION
  Report Type: Spontaneous
  Country: US (occurrence: US)
  Receive Date: 20140129
  Receipt Date: 20140129
  Transmission Date: 20141002
  Serious: No
  Sender: FDA-Public Use
  Company Number: US-TARO-2013P1021232

PATIENT
  Age: 55 Year
  Sex: Male
  Weight: 88.45 kg

DRUGS (1)
  1. KETOCONAZOLE CREAM 2% [Suspect]
     Route: 047
     Dates: start: 20131113, end: 20131113

REACTIONS (3)
  - Accidental exposure to product [Recovered/Resolved]
  - Ocular hyperaemia [Recovered/Resolved]
  - Eye irritation [Recovered/Resolved]
